FAERS Safety Report 17195581 (Version 1)
Quarter: 2019Q4

REPORT INFORMATION
  Report Type: Report from Study
  Country: US (occurrence: US)
  Receive Date: 20191224
  Receipt Date: 20191224
  Transmission Date: 20200122
  Serious: Yes (Death, Other)
  Sender: FDA-Public Use
  Company Number: US-AUROBINDO-AUR-APL-2019-105017

PATIENT
  Age: 20 Year
  Sex: Male

DRUGS (5)
  1. FLUOXETINE [Suspect]
     Active Substance: FLUOXETINE HYDROCHLORIDE
     Indication: PRODUCT USED FOR UNKNOWN INDICATION
     Dosage: 1570 NANOGRAM PER MILLLIITER
     Route: 065
  2. LOPERAMIDE [Suspect]
     Active Substance: LOPERAMIDE
     Indication: PRODUCT USED FOR UNKNOWN INDICATION
     Dosage: 380 NANOGRAM PER MILLLIITER
     Route: 065
  3. BUPROPION. [Suspect]
     Active Substance: BUPROPION
     Indication: PRODUCT USED FOR UNKNOWN INDICATION
     Dosage: 51.9 NANOGRAM PER MILLLIITER
     Route: 065
  4. SEPROXETINE [Suspect]
     Active Substance: SEPROXETINE
     Indication: PRODUCT USED FOR UNKNOWN INDICATION
     Dosage: 1390 NANOGRAM PER MILLLIITER
     Route: 065
  5. DEXTROMETHORPHAN [Suspect]
     Active Substance: DEXTROMETHORPHAN
     Indication: PRODUCT USED FOR UNKNOWN INDICATION
     Dosage: 1716 NANOGRAM PER MILLLIITER
     Route: 065

REACTIONS (7)
  - Hepatic steatosis [Fatal]
  - Toxicity to various agents [Fatal]
  - Overdose [Fatal]
  - Pulmonary oedema [Fatal]
  - Pancreatitis acute [Fatal]
  - Drug abuse [Fatal]
  - Cardiomegaly [Fatal]
